FAERS Safety Report 11936213 (Version 2)
Quarter: 2016Q3

REPORT INFORMATION
  Report Type: Report from Study
  Country: US (occurrence: US)
  Receive Date: 20160121
  Receipt Date: 20160728
  Transmission Date: 20161109
  Serious: Yes (Other)
  Sender: FDA-Public Use
  Company Number: US-AMGEN-USASL2015132675

PATIENT
  Age: 62 Year
  Sex: Male

DRUGS (4)
  1. KYPROLIS [Suspect]
     Active Substance: CARFILZOMIB
     Indication: NEOPLASM MALIGNANT
     Dosage: QWK
     Route: 065
     Dates: start: 20150814
  2. POMALYST [Concomitant]
     Active Substance: POMALIDOMIDE
     Dosage: THREE WEEKS ON AND ONE WEEK OFF
  3. KYPROLIS [Suspect]
     Active Substance: CARFILZOMIB
     Dosage: THREE WEEKS AND ONE WEEK OFF.
     Route: 065
  4. KYPROLIS [Suspect]
     Active Substance: CARFILZOMIB
     Dosage: TWO DOSES PER WEEK
     Route: 065
     Dates: start: 2015

REACTIONS (4)
  - Back pain [Unknown]
  - Dyspnoea [Unknown]
  - Bronchitis [Unknown]
  - Asthenia [Not Recovered/Not Resolved]

NARRATIVE: CASE EVENT DATE: 2015
